FAERS Safety Report 12988217 (Version 1)
Quarter: 2016Q4

REPORT INFORMATION
  Report Type: Spontaneous
  Country: US (occurrence: US)
  Receive Date: 20161130
  Receipt Date: 20161130
  Transmission Date: 20170207
  Serious: No
  Sender: FDA-Public Use
  Company Number: US-CELGENEUS-USA-2016115732

PATIENT
  Sex: Male

DRUGS (3)
  1. POMALYST [Suspect]
     Active Substance: POMALIDOMIDE
     Indication: PLASMA CELL MYELOMA
     Dosage: 4MG
     Route: 048
     Dates: start: 201411
  2. POMALYST [Suspect]
     Active Substance: POMALIDOMIDE
     Dosage: 3MG
     Route: 048
     Dates: start: 201501
  3. POMALYST [Suspect]
     Active Substance: POMALIDOMIDE
     Dosage: 1MG
     Route: 048
     Dates: start: 201503

REACTIONS (1)
  - Myopia [Unknown]
